FAERS Safety Report 8250396-8 (Version None)
Quarter: 2012Q2

REPORT INFORMATION
  Report Type: 
  Country: None (occurrence: None)
  Receive Date: 20120402
  Receipt Date: 20120324
  Transmission Date: 20120825
  Serious: Yes (Other)
  Sender: FDA-Public Use
  Company Number: ES-JNJFOC-20120313867

PATIENT
  Age: 48 Year
  Sex: Female

DRUGS (4)
  1. RISPERDAL CONSTA [Suspect]
     Indication: MANIA
     Route: 030
  2. QUETIAPINE [Concomitant]
     Indication: MANIA
     Route: 065
  3. QUETIAPINE [Concomitant]
     Indication: SCHIZOAFFECTIVE DISORDER
     Route: 065
  4. RISPERDAL CONSTA [Suspect]
     Indication: SCHIZOAFFECTIVE DISORDER
     Route: 030

REACTIONS (6)
  - DEPRESSION [None]
  - CLUMSINESS [None]
  - COGNITIVE DISORDER [None]
  - ABNORMAL WEIGHT GAIN [None]
  - SALIVARY HYPERSECRETION [None]
  - SEDATION [None]
